FAERS Safety Report 20504083 (Version 3)
Quarter: 2022Q1

REPORT INFORMATION
  Report Type: Report from Study
  Country: ES (occurrence: ES)
  Receive Date: 20220222
  Receipt Date: 20220307
  Transmission Date: 20220424
  Serious: Yes (Death)
  Sender: FDA-Public Use
  Company Number: ES-PFIZER INC-202200292420

PATIENT
  Age: 81 Year
  Sex: Female
  Weight: 63.5 kg

DRUGS (11)
  1. PALBOCICLIB [Suspect]
     Active Substance: PALBOCICLIB
     Indication: Breast cancer
     Dosage: 125 MG (BEFORE PALMIRA STUDY)
     Dates: start: 20210707, end: 20220113
  2. PALBOCICLIB [Suspect]
     Active Substance: PALBOCICLIB
     Dosage: 125 MG (INSIDE PALMIRA STUDY)
     Dates: start: 20220204, end: 20220214
  3. FULVESTRANT [Suspect]
     Active Substance: FULVESTRANT
     Indication: Breast cancer
     Dosage: 500 MG
     Dates: start: 20220204, end: 20220204
  4. DUPHALAC [Concomitant]
     Active Substance: LACTULOSE
     Indication: Constipation
     Dosage: UNK
     Route: 048
     Dates: start: 202106
  5. VALSARTAN [Concomitant]
     Active Substance: VALSARTAN
     Indication: Hypertension
     Dosage: UNK
     Route: 048
     Dates: start: 1990
  6. ESOMEPRAZOLE [ESOMEPRAZOLE SODIUM] [Concomitant]
     Indication: Hiatus hernia
     Dosage: UNK
     Route: 048
     Dates: start: 1990
  7. FENTANYL [Concomitant]
     Active Substance: FENTANYL
     Indication: Bone pain
     Dosage: UNK
     Route: 062
     Dates: start: 202107
  8. ABSTRAL [Concomitant]
     Active Substance: FENTANYL CITRATE
     Indication: Bone pain
     Dosage: UNK
     Route: 060
     Dates: start: 202107
  9. ACETAMINOPHEN [Concomitant]
     Active Substance: ACETAMINOPHEN
     Indication: Bone pain
     Dosage: UNK
     Route: 048
     Dates: start: 202106
  10. CALCIUM CARBONATE [Concomitant]
     Active Substance: CALCIUM CARBONATE
     Indication: Osteoporosis
     Dosage: UNK
     Route: 048
     Dates: start: 20210729
  11. CHOLECALCIFEROL [Concomitant]
     Active Substance: CHOLECALCIFEROL
     Indication: Osteoporosis
     Dosage: UNK
     Route: 048
     Dates: start: 20210729

REACTIONS (1)
  - Thrombotic thrombocytopenic purpura [Fatal]

NARRATIVE: CASE EVENT DATE: 20220214
